FAERS Safety Report 12705935 (Version 5)
Quarter: 2022Q3

REPORT INFORMATION
  Report Type: Other
  Country: US (occurrence: None)
  Receive Date: 20160901
  Receipt Date: 20220916
  Transmission Date: 20221026
  Serious: Yes (Disabling, Other)
  Sender: FDA-Public Use
  Company Number: US-ROCHE-1823816

PATIENT
  Age: 58 Year
  Sex: Male

DRUGS (8)
  1. RITUXAN [Suspect]
     Active Substance: RITUXIMAB
     Indication: Neuromyelitis optica spectrum disorder
     Dosage: FREQUENCY: X2 Q6MONTH,?IN FEB/2014,IN 2015, ON 05/OCT/2015 AND 21/OCT/2015, HE RECEIVED RITUXIMAB 10
     Route: 042
     Dates: start: 201402
  2. RITUXAN [Suspect]
     Active Substance: RITUXIMAB
     Indication: Demyelination
     Dosage: FREQUENCY: X2 Q6MONTH,?IN FEB/2014,IN 2015, ON 05/OCT/2015 AND 21/OCT/2015, HE RECEIVED RITUXIMAB 10
     Route: 042
     Dates: start: 2015
  3. RITUXAN [Suspect]
     Active Substance: RITUXIMAB
     Dosage: FREQUENCY: X2 Q6MONTH, IN FEB/2014,IN 2015, ON 05/OCT/2015 AND 21/OCT/2015, HE RECEIVED RITUXIMAB 10
     Route: 042
     Dates: start: 20151005
  4. RITUXAN [Suspect]
     Active Substance: RITUXIMAB
     Dosage: FREQUENCY: X2 Q6MONTH,?IN FEB/2014,IN 2015, ON 05/OCT/2015 AND 21/OCT/2015, HE RECEIVED RITUXIMAB 10
     Route: 042
     Dates: start: 20151021
  5. RITUXAN [Suspect]
     Active Substance: RITUXIMAB
     Dosage: QUANTITY: 1, REFILLS: 1 YEAR
     Route: 042
  6. ALPRAZOLAM [Concomitant]
     Active Substance: ALPRAZOLAM
     Route: 048
  7. DULOXETINE [Concomitant]
     Active Substance: DULOXETINE
     Route: 048
  8. ZOLPIDEM [Concomitant]
     Active Substance: ZOLPIDEM TARTRATE
     Route: 048

REACTIONS (5)
  - Bronchitis [Recovering/Resolving]
  - Pulmonary pain [Recovering/Resolving]
  - Pulmonary embolism [Recovered/Resolved]
  - Pulmonary pain [Unknown]
  - Off label use [Unknown]

NARRATIVE: CASE EVENT DATE: 20160829
